FAERS Safety Report 6291185-3 (Version None)
Quarter: 2009Q3

REPORT INFORMATION
  Report Type: 
  Country: None (occurrence: None)
  Receive Date: 20090730
  Receipt Date: 20090728
  Transmission Date: 20100115
  Serious: Yes (Hospitalization, Disabling)
  Sender: FDA-Public Use
  Company Number: D0062064A

PATIENT
  Sex: Male
  Weight: 75 kg

DRUGS (9)
  1. ARIXTRA [Suspect]
     Indication: DEEP VEIN THROMBOSIS
     Dosage: 7.5MG PER DAY
     Route: 058
     Dates: start: 20090327, end: 20090414
  2. DELIX [Concomitant]
     Dosage: 5MG PER DAY
     Route: 048
  3. LYRICA [Concomitant]
     Dosage: 75MG TWICE PER DAY
     Route: 048
  4. OMEPRAZOL [Concomitant]
     Dosage: 20MG PER DAY
     Route: 048
  5. CYTOSTATICS [Concomitant]
     Indication: PANCREATIC CARCINOMA
     Route: 065
  6. TINZAPARIN [Concomitant]
     Route: 065
     Dates: start: 20090401
  7. EMBOLEX [Concomitant]
     Dosage: 8000IU PER DAY
     Route: 065
     Dates: start: 20090320
  8. CREON [Concomitant]
     Dosage: 10000U UNKNOWN
     Route: 048
  9. TARGIN [Concomitant]
     Dosage: 15MG UNKNOWN
     Route: 048

REACTIONS (6)
  - DEEP VEIN THROMBOSIS [None]
  - DYSPNOEA [None]
  - OEDEMA PERIPHERAL [None]
  - PAIN IN EXTREMITY [None]
  - PULMONARY EMBOLISM [None]
  - VENOUS THROMBOSIS [None]
